FAERS Safety Report 23592147 (Version 1)
Quarter: 2024Q1

REPORT INFORMATION
  Report Type: Spontaneous
  Country: US (occurrence: None)
  Receive Date: 20240304
  Receipt Date: 20240304
  Transmission Date: 20240410
  Serious: Yes (Hospitalization)
  Sender: FDA-Public Use
  Company Number: None

PATIENT
  Sex: Male

DRUGS (2)
  1. METHOTREXATE [Suspect]
     Active Substance: METHOTREXATE
     Indication: Psoriatic arthropathy
     Dosage: 0.6ML  EVERY 7 DAYS SC?
     Route: 058
     Dates: start: 202109
  2. RINVOQ ER [Concomitant]

REACTIONS (1)
  - Pulmonary embolism [None]
